FAERS Safety Report 17523891 (Version 15)
Quarter: 2022Q3

REPORT INFORMATION
  Report Type: Spontaneous
  Country: GB (occurrence: GB)
  Receive Date: 20200310
  Receipt Date: 20220829
  Transmission Date: 20221027
  Serious: Yes (Life-Threatening, Hospitalization, Other)
  Sender: FDA-Public Use
  Company Number: GB-ATHLAB-200124-0005214

PATIENT
  Age: 63 Year
  Sex: Female

DRUGS (8)
  1. RIFAMPIN [Suspect]
     Active Substance: RIFAMPIN
     Indication: Skin infection
     Dosage: 150 MILLIGRAM
     Route: 065
  2. RIFAMPIN [Suspect]
     Active Substance: RIFAMPIN
     Indication: Drug-induced liver injury
  3. RIFAMPIN [Suspect]
     Active Substance: RIFAMPIN
     Indication: Product used for unknown indication
  4. FLUCLOXACILLIN [Suspect]
     Active Substance: FLUCLOXACILLIN
     Indication: Skin infection
     Dosage: UNK
     Route: 065
  5. FLUCLOXACILLIN [Suspect]
     Active Substance: FLUCLOXACILLIN
     Indication: Psoriasis
     Dosage: UNK
     Route: 065
  6. FLUCLOXACILLIN [Suspect]
     Active Substance: FLUCLOXACILLIN
     Dosage: UNK
     Route: 065
  7. URSODIOL [Suspect]
     Active Substance: URSODIOL
     Indication: Drug-induced liver injury
     Dosage: 750 MILLIGRAM, QD
     Route: 065
  8. URSODIOL [Suspect]
     Active Substance: URSODIOL
     Indication: Product used for unknown indication
     Dosage: UNK
     Route: 065

REACTIONS (18)
  - Weight decreased [Recovered/Resolved with Sequelae]
  - Ocular icterus [Recovered/Resolved with Sequelae]
  - Jaundice [Recovered/Resolved with Sequelae]
  - Decreased appetite [Recovered/Resolved with Sequelae]
  - Blood alkaline phosphatase increased [Recovered/Resolved with Sequelae]
  - Gamma-glutamyltransferase decreased [Recovered/Resolved with Sequelae]
  - Aspartate aminotransferase increased [Recovered/Resolved with Sequelae]
  - Pruritus [Recovered/Resolved with Sequelae]
  - Lethargy [Recovered/Resolved with Sequelae]
  - Hyperbilirubinaemia [Recovered/Resolved]
  - Alanine aminotransferase increased [Recovered/Resolved]
  - Disease progression [Unknown]
  - Bile duct necrosis [Recovered/Resolved]
  - Cholestasis [Recovered/Resolved with Sequelae]
  - Cachexia [Recovered/Resolved with Sequelae]
  - Drug-induced liver injury [Recovered/Resolved]
  - Vanishing bile duct syndrome [Recovered/Resolved]
  - Product use in unapproved indication [Unknown]
